FAERS Safety Report 16717894 (Version 1)
Quarter: 2019Q3

REPORT INFORMATION
  Report Type: Report from Study
  Country: JP (occurrence: JP)
  Receive Date: 20190819
  Receipt Date: 20190819
  Transmission Date: 20191005
  Serious: Yes (Hospitalization, Other)
  Sender: FDA-Public Use
  Company Number: JP-B.I. PHARMACEUTICALS,INC./RIDGEFIELD-2019-NB-002595

PATIENT
  Age: 83 Year
  Sex: Male
  Weight: 56.5 kg

DRUGS (28)
  1. PREDNISOLONE. [Suspect]
     Active Substance: PREDNISOLONE
     Route: 065
     Dates: start: 20160220, end: 20160309
  2. PREDNISOLONE. [Suspect]
     Active Substance: PREDNISOLONE
     Route: 065
     Dates: start: 20160408, end: 20160510
  3. PREDNISOLONE. [Suspect]
     Active Substance: PREDNISOLONE
     Route: 065
     Dates: start: 20160512, end: 20160803
  4. PREDNISOLONE. [Suspect]
     Active Substance: PREDNISOLONE
     Route: 065
     Dates: start: 20160804, end: 20160831
  5. PREDNISOLONE. [Suspect]
     Active Substance: PREDNISOLONE
     Route: 065
     Dates: start: 20170216, end: 20170705
  6. PREDNISOLONE. [Suspect]
     Active Substance: PREDNISOLONE
     Route: 065
     Dates: start: 20170706
  7. MIYA-BM [Concomitant]
     Active Substance: CLOSTRIDIUM BUTYRICUM SPORES STRAIN M-55
     Indication: PRODUCT USED FOR UNKNOWN INDICATION
     Route: 065
  8. PREDNISOLONE. [Suspect]
     Active Substance: PREDNISOLONE
     Route: 065
     Dates: start: 20161103, end: 20170215
  9. BIBF 1120 [Suspect]
     Active Substance: NINTEDANIB
     Route: 065
     Dates: start: 20170823, end: 20171017
  10. BIBF 1120 [Suspect]
     Active Substance: NINTEDANIB
     Route: 065
     Dates: start: 20171018, end: 20171115
  11. MAGMITT [Concomitant]
     Active Substance: MAGNESIUM OXIDE
     Indication: PRODUCT USED FOR UNKNOWN INDICATION
     Route: 065
     Dates: end: 20160719
  12. SENNOSIDE [Concomitant]
     Active Substance: SENNOSIDES
     Indication: PRODUCT USED FOR UNKNOWN INDICATION
     Route: 065
     Dates: end: 20160406
  13. ALENDRONATE [Concomitant]
     Active Substance: ALENDRONATE SODIUM
     Indication: OSTEOPOROSIS PROPHYLAXIS
     Route: 065
     Dates: start: 20160224
  14. BIBF 1120 [Suspect]
     Active Substance: NINTEDANIB
     Route: 065
     Dates: start: 20171116
  15. BACTRAMIN [Suspect]
     Active Substance: SULFAMETHOXAZOLE\TRIMETHOPRIM
     Indication: PRODUCT USED FOR UNKNOWN INDICATION
     Route: 065
  16. LANSOPRAZOLE. [Concomitant]
     Active Substance: LANSOPRAZOLE
     Indication: PRODUCT USED FOR UNKNOWN INDICATION
     Route: 065
     Dates: end: 20160921
  17. ZOLPIDEM TARTRATE. [Concomitant]
     Active Substance: ZOLPIDEM TARTRATE
     Indication: PRODUCT USED FOR UNKNOWN INDICATION
     Route: 065
     Dates: end: 20161101
  18. BIBF 1120 [Suspect]
     Active Substance: NINTEDANIB
     Indication: IDIOPATHIC PULMONARY FIBROSIS
     Route: 065
     Dates: start: 20160130, end: 20170822
  19. EQUA [Concomitant]
     Active Substance: VILDAGLIPTIN
     Indication: PRODUCT USED FOR UNKNOWN INDICATION
     Route: 065
     Dates: start: 20160227, end: 20160927
  20. PREDNISOLONE. [Suspect]
     Active Substance: PREDNISOLONE
     Indication: IDIOPATHIC PULMONARY FIBROSIS
     Route: 065
     Dates: start: 20160202, end: 20160208
  21. PREDNISOLONE. [Suspect]
     Active Substance: PREDNISOLONE
     Route: 065
     Dates: start: 20160311, end: 20160407
  22. PREDNISOLONE. [Suspect]
     Active Substance: PREDNISOLONE
     Route: 065
     Dates: start: 20160901, end: 20161102
  23. FAMOTIDINE. [Suspect]
     Active Substance: FAMOTIDINE
     Indication: PRODUCT USED FOR UNKNOWN INDICATION
     Route: 065
     Dates: start: 20160922
  24. JANUVIA [Concomitant]
     Active Substance: SITAGLIPTIN PHOSPHATE
     Indication: PRODUCT USED FOR UNKNOWN INDICATION
     Route: 065
     Dates: start: 20160928, end: 20170510
  25. PREDNISOLONE. [Suspect]
     Active Substance: PREDNISOLONE
     Route: 065
     Dates: start: 20160209, end: 20160219
  26. EQUA [Concomitant]
     Active Substance: VILDAGLIPTIN
     Indication: PRODUCT USED FOR UNKNOWN INDICATION
     Route: 065
     Dates: start: 20160213, end: 20160227
  27. SUREPOST [Concomitant]
     Active Substance: REPAGLINIDE
     Indication: PRODUCT USED FOR UNKNOWN INDICATION
     Route: 065
     Dates: start: 20160224, end: 20160816
  28. SUREPOST [Concomitant]
     Active Substance: REPAGLINIDE
     Indication: PRODUCT USED FOR UNKNOWN INDICATION
     Route: 065
     Dates: start: 20160817

REACTIONS (3)
  - Faeces soft [Recovered/Resolved]
  - Diarrhoea [Recovered/Resolved]
  - Deep vein thrombosis [Recovered/Resolved]

NARRATIVE: CASE EVENT DATE: 20160407
